FAERS Safety Report 8029892-4 (Version None)
Quarter: 2011Q4

REPORT INFORMATION
  Report Type: 
  Country: None (occurrence: None)
  Receive Date: 20111130
  Receipt Date: 20110608
  Transmission Date: 20120403
  Serious: Yes (Other)
  Sender: FDA-Public Use
  Company Number: US201104006172

PATIENT
  Age: 55 Year
  Sex: Female
  Weight: 79.4 kg

DRUGS (8)
  1. ASPIRIN [Concomitant]
  2. CRESTOR [Concomitant]
  3. GLYBURIDE AND METFORMIN HCL [Concomitant]
  4. DIOVAN HCT [Concomitant]
  5. BYETTA [Suspect]
     Indication: TYPE 2 DIABETES MELLITUS
     Dosage: 5 UG, BID, SUBCUTANEOUS, 10 UG, BID, SUBCUTANEOUS
     Route: 058
     Dates: start: 20101123, end: 20101223
  6. BYETTA [Suspect]
     Indication: TYPE 2 DIABETES MELLITUS
     Dosage: 5 UG, BID, SUBCUTANEOUS, 10 UG, BID, SUBCUTANEOUS
     Route: 058
     Dates: start: 20101223, end: 20110407
  7. TRILIPIX [Concomitant]
  8. MOTRIN [Concomitant]

REACTIONS (8)
  - NAUSEA [None]
  - WEIGHT DECREASED [None]
  - ABDOMINAL DISTENSION [None]
  - PANCREATITIS [None]
  - GASTROINTESTINAL SOUNDS ABNORMAL [None]
  - APPETITE DISORDER [None]
  - ABDOMINAL PAIN [None]
  - PANCREATIC ENZYMES INCREASED [None]
